FAERS Safety Report 5657364-0 (Version None)
Quarter: 2008Q1

REPORT INFORMATION
  Report Type: 
  Country: None (occurrence: None)
  Receive Date: 20080310
  Receipt Date: 20080227
  Transmission Date: 20080703
  Serious: Yes (Death, Life-Threatening, Hospitalization)
  Sender: FDA-Public Use
  Company Number: US-PFIZER INC-2007093011

PATIENT
  Age: 56 Year
  Sex: Male
  Weight: 102 kg

DRUGS (8)
  1. SUTENT [Suspect]
     Indication: BLADDER TRANSITIONAL CELL CARCINOMA
     Route: 048
     Dates: start: 20061206, end: 20071017
  2. BEVACIZUMAB [Suspect]
     Indication: BLADDER TRANSITIONAL CELL CARCINOMA
     Route: 042
     Dates: start: 20061206, end: 20071008
  3. NORVASC [Suspect]
  4. TOPROL-XL [Suspect]
  5. PRINIVIL [Suspect]
     Route: 048
  6. OXYCODONE HCL [Concomitant]
  7. CELEXA [Concomitant]
  8. NASONEX [Concomitant]

REACTIONS (8)
  - ACIDOSIS [None]
  - ANOREXIA [None]
  - DEHYDRATION [None]
  - FATIGUE [None]
  - GASTROINTESTINAL NECROSIS [None]
  - HYPOTENSION [None]
  - INTESTINAL ISCHAEMIA [None]
  - INTUSSUSCEPTION [None]
